FAERS Safety Report 4512133-X (Version None)
Quarter: 2004Q4

REPORT INFORMATION
  Report Type: 
  Country: None (occurrence: None)
  Receive Date: 20041129
  Receipt Date: 20031219
  Transmission Date: 20050328
  Serious: No
  Sender: FDA-Public Use
  Company Number: US-GLAXOSMITHKLINE-A0443777A

PATIENT
  Age: 76 Year
  Sex: Male
  Weight: 97.7 kg

DRUGS (1)
  1. LANOXIN [Suspect]
     Dosage: .125MG UNKNOWN
     Route: 048
     Dates: start: 20000101

REACTIONS (1)
  - DRUG INEFFECTIVE [None]
